FAERS Safety Report 7421582-1 (Version None)
Quarter: 2011Q2

REPORT INFORMATION
  Report Type: 
  Country: None (occurrence: None)
  Receive Date: 20110418
  Receipt Date: 20110412
  Transmission Date: 20111010
  Serious: Yes (Hospitalization)
  Sender: FDA-Public Use
  Company Number: NL-BRISTOL-MYERS SQUIBB COMPANY-15669542

PATIENT
  Age: 57 Year
  Sex: Male

DRUGS (5)
  1. CAPECITABINE [Suspect]
     Indication: METASTATIC GASTRIC CANCER
     Route: 048
     Dates: start: 20110405, end: 20110412
  2. CISPLATIN [Suspect]
     Indication: METASTATIC GASTRIC CANCER
     Route: 042
     Dates: start: 20110405, end: 20110405
  3. BMS833923 [Suspect]
     Indication: METASTATIC GASTRIC CANCER
     Route: 048
     Dates: start: 20110322, end: 20110412
  4. PRIMPERAN TAB [Concomitant]
     Dates: start: 20110405
  5. ONDANSETRON [Concomitant]
     Dates: start: 20110405

REACTIONS (2)
  - NAUSEA [None]
  - LIPASE INCREASED [None]
